FAERS Safety Report 5446574-3 (Version None)
Quarter: 2007Q3

REPORT INFORMATION
  Report Type: 
  Country: None (occurrence: None)
  Receive Date: 20070907
  Receipt Date: 20070403
  Transmission Date: 20080115
  Serious: Yes (Other)
  Sender: FDA-Public Use
  Company Number: US-PFIZER INC-2007028034

PATIENT
  Sex: Male
  Weight: 90.7 kg

DRUGS (2)
  1. LIPITOR [Suspect]
     Indication: CARDIAC DISORDER
  2. LIPITOR [Suspect]
     Indication: BLOOD CHOLESTEROL INCREASED

REACTIONS (2)
  - MYALGIA [None]
  - NERVE INJURY [None]
